FAERS Safety Report 5802680-2 (Version None)
Quarter: 2008Q3

REPORT INFORMATION
  Report Type: 
  Country: None (occurrence: None)
  Receive Date: 20080708
  Receipt Date: 20080207
  Transmission Date: 20090109
  Serious: Yes (Other)
  Sender: FDA-Public Use
  Company Number: US-BAYER-200813577NA

PATIENT
  Age: 58 Year
  Sex: Male
  Weight: 79 kg

DRUGS (2)
  1. MAGNEVIST [Suspect]
     Indication: NUCLEAR MAGNETIC RESONANCE IMAGING
     Route: 040
     Dates: start: 20060627, end: 20060627
  2. MAGNEVIST [Suspect]
     Route: 040
     Dates: start: 20060221, end: 20060221

REACTIONS (1)
  - NEPHROGENIC SYSTEMIC FIBROSIS [None]
